FAERS Safety Report 10693006 (Version 2)
Quarter: 2015Q1

REPORT INFORMATION
  Report Type: Report from Study
  Country: KR (occurrence: KR)
  Receive Date: 20150106
  Receipt Date: 20150108
  Transmission Date: 20150720
  Serious: Yes (Other)
  Sender: FDA-Public Use
  Company Number: KR-OTSUKA-JP-2015-10034

PATIENT

DRUGS (18)
  1. FUROSEMIDE. [Concomitant]
     Active Substance: FUROSEMIDE
     Dosage: 40 MG MILLIGRAM(S), DAILY DOSE
     Route: 042
     Dates: start: 20141230
  2. SPIRONOLACTONE. [Concomitant]
     Active Substance: SPIRONOLACTONE
     Dosage: 25 MG MILLIGRAM(S), DAILY DOSE
     Route: 048
     Dates: start: 20141228, end: 20141228
  3. HYDROCHLOROTHIAZIDE. [Concomitant]
     Active Substance: HYDROCHLOROTHIAZIDE
     Indication: HYPONATRAEMIA
     Dosage: 25 MG MILLIGRAM(S), DAILY DOSE
     Route: 048
     Dates: start: 20141231
  4. SAMSCA [Suspect]
     Active Substance: TOLVAPTAN
     Indication: HYPONATRAEMIA
     Dosage: 15 MG MILLIGRAM(S), QD
     Route: 048
     Dates: start: 20141225, end: 20141227
  5. SAMSCA [Suspect]
     Active Substance: TOLVAPTAN
     Dosage: 15 MG MILLIGRAM(S), QD
     Route: 048
     Dates: start: 20141229, end: 20141230
  6. SPIRONOLACTONE. [Concomitant]
     Active Substance: SPIRONOLACTONE
     Indication: HYPONATRAEMIA
     Dosage: 25 MG MILLIGRAM(S), DAILY DOSE
     Route: 048
     Dates: start: 20141211, end: 20141227
  7. DOPAMIX [Concomitant]
     Indication: HYPONATRAEMIA
     Dosage: 1 DF DOSAGE FORM, DAILY DOSE
     Route: 042
     Dates: start: 20141226
  8. TAMADOL [Concomitant]
     Indication: HYPONATRAEMIA
     Dosage: 100 MG MILLIGRAM(S), DAILY DOSE
     Route: 042
     Dates: start: 20141227, end: 20141228
  9. SAMSCA [Suspect]
     Active Substance: TOLVAPTAN
     Dosage: 15 MG MILLIGRAM(S), BID
     Route: 048
     Dates: start: 20141231, end: 20141231
  10. FUROSEMIDE. [Concomitant]
     Active Substance: FUROSEMIDE
     Indication: HYPONATRAEMIA
     Dosage: 20 MG MILLIGRAM(S), DAILY DOSE
     Route: 042
     Dates: start: 20141225, end: 20141227
  11. ASPIRIN. [Concomitant]
     Active Substance: ASPIRIN
     Indication: HYPONATRAEMIA
     Dosage: 100 MG MILLIGRAM(S), DAILY DOSE
     Route: 048
     Dates: start: 20141220
  12. CAPTOPRIL. [Concomitant]
     Active Substance: CAPTOPRIL
     Indication: HYPONATRAEMIA
     Dosage: 12.5 MG MILLIGRAM(S), DAILY DOSE
     Route: 048
     Dates: start: 20141212
  13. SAMSCA [Suspect]
     Active Substance: TOLVAPTAN
     Dosage: 30 MG MILLIGRAM(S), QD
     Route: 048
     Dates: start: 20150101
  14. CEFTRIAXONE. [Concomitant]
     Active Substance: CEFTRIAXONE
     Indication: PROPHYLAXIS
     Dosage: 2 G GRAM(S), DAILY DOSE
     Route: 042
     Dates: start: 20141218, end: 20141229
  15. METOCLOPRAMIDE. [Concomitant]
     Active Substance: METOCLOPRAMIDE
     Indication: HYPONATRAEMIA
     Dosage: 10 MG MILLIGRAM(S), DAILY DOSE
     Route: 042
     Dates: start: 20141218, end: 20141226
  16. CEFOTAXIME [Concomitant]
     Active Substance: CEFOTAXIME\CEFOTAXIME SODIUM
     Indication: PROPHYLAXIS
     Dosage: 2 G GRAM(S), DAILY DOSE
     Route: 042
     Dates: start: 20141229
  17. ZOLPIDEM [Concomitant]
     Active Substance: ZOLPIDEM\ZOLPIDEM TARTRATE
     Indication: HYPONATRAEMIA
     Dosage: 5 MG MILLIGRAM(S), DAILY DOSE
     Route: 048
     Dates: start: 20141225
  18. TRIMETAZIDINE [Concomitant]
     Active Substance: TRIMETAZIDINE
     Indication: HYPONATRAEMIA
     Dosage: 70 MG MILLIGRAM(S), DAILY DOSE
     Route: 048
     Dates: start: 20141217

REACTIONS (6)
  - Tachypnoea [Recovering/Resolving]
  - Post procedural haemorrhage [Recovering/Resolving]
  - Dyspnoea [Recovered/Resolved]
  - Hypokalaemia [Recovering/Resolving]
  - Hypotension [Recovering/Resolving]
  - Inappropriate schedule of drug administration [Unknown]

NARRATIVE: CASE EVENT DATE: 20141228
